FAERS Safety Report 10429412 (Version 1)
Quarter: 2014Q3

REPORT INFORMATION
  Report Type: Spontaneous
  Country: US (occurrence: None)
  Receive Date: 20140902
  Receipt Date: 20140902
  Transmission Date: 20150326
  Serious: Yes (Hospitalization)
  Sender: FDA-Public Use
  Company Number: None

PATIENT
  Age: 69 Year
  Sex: Male
  Weight: 174 kg

DRUGS (1)
  1. VANCOMYCIN [Suspect]
     Active Substance: VANCOMYCIN
     Route: 048
     Dates: end: 20140212

REACTIONS (2)
  - Anaphylactic reaction [None]
  - Pain in extremity [None]

NARRATIVE: CASE EVENT DATE: 20140212
